FAERS Safety Report 19959392 (Version 1)
Quarter: 2021Q4

REPORT INFORMATION
  Report Type: Spontaneous
  Country: US (occurrence: US)
  Receive Date: 20211015
  Receipt Date: 20211015
  Transmission Date: 20220303
  Serious: Yes (Hospitalization, Other)
  Sender: FDA-Public Use
  Company Number: US-AMGEN-USASP2021156312

PATIENT
  Sex: Female

DRUGS (2)
  1. BLINCYTO [Suspect]
     Active Substance: BLINATUMOMAB
     Indication: B precursor type acute leukaemia
     Dosage: 28 MICROGRAM, QD (CYCLE EVERY 42 DAYS)
     Route: 042
     Dates: end: 20210913
  2. SPRYCEL [Concomitant]
     Active Substance: DASATINIB
     Dosage: UNK
     Dates: end: 20210913

REACTIONS (3)
  - Cytopenia [Unknown]
  - Arthritis bacterial [Unknown]
  - Pyrexia [Unknown]

NARRATIVE: CASE EVENT DATE: 20210901
